FAERS Safety Report 5976016-0 (Version None)
Quarter: 2008Q4

REPORT INFORMATION
  Report Type: 
  Country: None (occurrence: None)
  Receive Date: 20081202
  Receipt Date: 20081124
  Transmission Date: 20090506
  Serious: Yes (Hospitalization)
  Sender: FDA-Public Use
  Company Number: FR-ROCHE-599672

PATIENT
  Sex: Female

DRUGS (3)
  1. XELODA [Suspect]
     Indication: DRUG USE FOR UNKNOWN INDICATION
     Route: 048
  2. XELODA [Suspect]
     Dosage: DOSE REPORTED AS 2 G PER DAY 2 WEEKS ON 3, THEN DECREASE OF THE DOSAGE (NOS)
     Route: 048
  3. AVASTIN [Suspect]
     Indication: DRUG USE FOR UNKNOWN INDICATION
     Dosage: LAST INFUSION ON 28 AUGUST 2008
     Route: 042

REACTIONS (1)
  - PROTEINURIA [None]
